FAERS Safety Report 7245165-1 (Version None)
Quarter: 2011Q1

REPORT INFORMATION
  Report Type: 
  Country: None (occurrence: None)
  Receive Date: 20110118
  Receipt Date: 20110103
  Transmission Date: 20110831
  Serious: Yes (Hospitalization)
  Sender: FDA-Public Use
  Company Number: 0610012

PATIENT
  Age: 3 Year
  Sex: Male
  Weight: 15 kg

DRUGS (6)
  1. L-CARNITINE (L-CARNITINE) [Concomitant]
  2. VITAMIN E [Concomitant]
  3. VITAMIN C (VITAMIN C) [Concomitant]
  4. MILUPA TYR2 (UNKNOWN) [Concomitant]
  5. ORFADIN [Suspect]
     Indication: TYROSINAEMIA
     Dosage: 15 MG (5 MG, 3 IN 1 D), ORAL
     Route: 048
     Dates: start: 20021201
  6. CALCIUM (CALCIUM) [Concomitant]

REACTIONS (5)
  - AMINO ACID LEVEL INCREASED [None]
  - HEPATOMEGALY [None]
  - GASTROENTERITIS [None]
  - NEUROLOGICAL SYMPTOM [None]
  - ACUTE POLYNEUROPATHY [None]
